FAERS Safety Report 14802443 (Version 1)
Quarter: 2018Q2

REPORT INFORMATION
  Report Type: Spontaneous
  Country: US (occurrence: US)
  Receive Date: 20180424
  Receipt Date: 20180424
  Transmission Date: 20180711
  Serious: Yes (Other)
  Sender: FDA-Public Use
  Company Number: US-NAPPMUNDI-USA-2018-0143316

PATIENT
  Sex: Male

DRUGS (4)
  1. DILAUDID [Suspect]
     Active Substance: HYDROMORPHONE HYDROCHLORIDE
     Indication: PAIN
  2. OXYCONTIN [Suspect]
     Active Substance: OXYCODONE HYDROCHLORIDE
     Indication: MULTIPLE FRACTURES
     Dosage: 3X 80 MG, BID
     Route: 048
     Dates: end: 2016
  3. OXYCONTIN [Suspect]
     Active Substance: OXYCODONE HYDROCHLORIDE
     Indication: PAIN
  4. DILAUDID [Suspect]
     Active Substance: HYDROMORPHONE HYDROCHLORIDE
     Indication: MULTIPLE FRACTURES
     Dosage: 8 MG, UNK
     Route: 048
     Dates: start: 2008

REACTIONS (4)
  - Loss of consciousness [Unknown]
  - Drug dependence [Unknown]
  - Mental disorder [Not Recovered/Not Resolved]
  - Inadequate analgesia [Recovered/Resolved]
